FAERS Safety Report 20553151 (Version 1)
Quarter: 2022Q1

REPORT INFORMATION
  Report Type: Spontaneous
  Country: US (occurrence: None)
  Receive Date: 20220304
  Receipt Date: 20220304
  Transmission Date: 20220423
  Serious: Yes (unspecified)
  Sender: FDA-Public Use
  Company Number: None

PATIENT
  Age: 51 Year
  Sex: Male

DRUGS (1)
  1. TIGECYCLINE [Suspect]
     Active Substance: TIGECYCLINE
     Dosage: FREQUENCY : TWICE A DAY;?
     Route: 042
     Dates: start: 20211220, end: 20220107

REACTIONS (7)
  - Eosinophilia [None]
  - Pruritus [None]
  - White blood cell count increased [None]
  - Hypotension [None]
  - Bronchospasm [None]
  - Sinus tachycardia [None]
  - Therapy cessation [None]

NARRATIVE: CASE EVENT DATE: 20220107
